FAERS Safety Report 5447826-3 (Version None)
Quarter: 2007Q3

REPORT INFORMATION
  Report Type: 
  Country: None (occurrence: None)
  Receive Date: 20070910
  Receipt Date: 20070830
  Transmission Date: 20080115
  Serious: Yes (Death)
  Sender: FDA-Public Use
  Company Number: US-ELI_LILLY_AND_COMPANY-US200705003896

PATIENT
  Age: 21 Year
  Sex: Male

DRUGS (2)
  1. CYMBALTA [Suspect]
     Dosage: UNK, UNK
     Dates: start: 20061201
  2. AMBIEN [Concomitant]
     Indication: INSOMNIA
     Dosage: UNK, AS NEEDED
     Dates: start: 20061201

REACTIONS (1)
  - GUN SHOT WOUND [None]
